FAERS Safety Report 7498775-0 (Version None)
Quarter: 2011Q2

REPORT INFORMATION
  Report Type: 
  Country: None (occurrence: None)
  Receive Date: 20110524
  Receipt Date: 20110520
  Transmission Date: 20111010
  Serious: No
  Sender: FDA-Public Use
  Company Number: US-PFIZER INC-2011109774

PATIENT
  Sex: Male
  Weight: 102 kg

DRUGS (1)
  1. GABAPENTIN [Suspect]
     Indication: SKIN DISORDER
     Dosage: 300MG ORAL CAPSULE ONE IN THE MORNING ONE AT LUNCH AND THREE AT BED TIME
     Route: 048
     Dates: start: 20100501, end: 20110501

REACTIONS (1)
  - DRUG INEFFECTIVE [None]
